FAERS Safety Report 4481089-0 (Version None)
Quarter: 2004Q4

REPORT INFORMATION
  Report Type: 
  Country: None (occurrence: None)
  Receive Date: 20041019
  Receipt Date: 20041019
  Transmission Date: 20050328
  Serious: Yes (Life-Threatening)
  Sender: FDA-Public Use
  Company Number: None

PATIENT
  Age: 42 Year
  Sex: Male
  Weight: 86.637 kg

DRUGS (2)
  1. Z PACK [Suspect]
     Indication: BRONCHITIS
     Dosage: AS DIRECT 5 DAY
     Dates: start: 20040925, end: 20041001
  2. ALARVERT [Concomitant]

REACTIONS (3)
  - ELECTROCARDIOGRAM U-WAVE ABNORMALITY [None]
  - PALPITATIONS [None]
  - VENTRICULAR EXTRASYSTOLES [None]
